FAERS Safety Report 9797756 (Version 2)
Quarter: 2014Q1

REPORT INFORMATION
  Report Type: Spontaneous
  Country: KR (occurrence: KR)
  Receive Date: 20140106
  Receipt Date: 20140120
  Transmission Date: 20141002
  Serious: Yes (Hospitalization, Other)
  Sender: FDA-Public Use
  Company Number: KR-JNJFOC-20131217219

PATIENT
  Sex: Female

DRUGS (1)
  1. DURAGESIC [Suspect]
     Indication: PRODUCT USED FOR UNKNOWN INDICATION
     Route: 062

REACTIONS (6)
  - Coma [Unknown]
  - Craniocerebral injury [Unknown]
  - Paraplegia [Unknown]
  - Drug diversion [Unknown]
  - Overdose [Unknown]
  - Respiratory depression [Unknown]
